FAERS Safety Report 10244453 (Version 2)
Quarter: 2014Q3

REPORT INFORMATION
  Report Type: Spontaneous
  Country: GB (occurrence: None)
  Receive Date: 20140616
  Receipt Date: 20140702
  Transmission Date: 20150326
  Serious: Yes (Other)
  Sender: FDA-Public Use
  Company Number: AUR-APL-2014-06246

PATIENT
  Age: 68 Year
  Sex: Male
  Weight: 95 kg

DRUGS (1)
  1. SIMVASTATIN 40 MG (SIMVASTATIN) UNKNOWN, 40MG [Suspect]
     Active Substance: SIMVASTATIN
     Indication: HYPERTENSION
     Route: 048
     Dates: start: 20100301, end: 20140519

REACTIONS (4)
  - Malaise [None]
  - Nausea [None]
  - Hypophagia [None]
  - Hepatitis [None]

NARRATIVE: CASE EVENT DATE: 20140509
